FAERS Safety Report 5777495-4 (Version None)
Quarter: 2008Q2

REPORT INFORMATION
  Report Type: 
  Country: None (occurrence: None)
  Receive Date: 20080618
  Receipt Date: 20080606
  Transmission Date: 20081010
  Serious: Yes (Death, Other)
  Sender: FDA-Public Use
  Company Number: US-PFIZER INC-2008048284

PATIENT
  Sex: Female
  Weight: 44.5 kg

DRUGS (13)
  1. XANAX [Suspect]
     Indication: ANXIETY
  2. OXYMORPHONE [Interacting]
     Indication: PAIN IN EXTREMITY
     Route: 048
  3. LORCET-HD [Interacting]
     Indication: PAIN
  4. LANTUS [Interacting]
     Indication: TYPE 1 DIABETES MELLITUS
  5. NOVOLOG [Interacting]
     Indication: TYPE 1 DIABETES MELLITUS
     Route: 058
  6. ZONEGRAN [Interacting]
     Route: 048
  7. TRILEPTAL [Interacting]
     Indication: NEURALGIA
     Route: 048
  8. CYMBALTA [Interacting]
     Indication: DEPRESSION
     Dosage: DAILY DOSE:90MG
     Route: 048
  9. LYRICA [Concomitant]
     Indication: FIBROMYALGIA
     Route: 048
  10. PLAVIX [Concomitant]
     Indication: THROMBOSIS PROPHYLAXIS
     Dosage: DAILY DOSE:75MG
     Route: 048
  11. PREVACID [Concomitant]
     Indication: GASTROOESOPHAGEAL REFLUX DISEASE
     Dosage: DAILY DOSE:60MG
     Route: 048
  12. REGLAN [Concomitant]
     Indication: IMPAIRED GASTRIC EMPTYING
  13. HYZAAR [Concomitant]
     Indication: HYPERTENSION
     Route: 048

REACTIONS (7)
  - DEATH [None]
  - DIABETES MELLITUS INADEQUATE CONTROL [None]
  - DRUG INTERACTION [None]
  - MALAISE [None]
  - PAIN IN EXTREMITY [None]
  - RESTLESSNESS [None]
  - VOMITING [None]
